FAERS Safety Report 25836689 (Version 1)
Quarter: 2025Q3

REPORT INFORMATION
  Report Type: Spontaneous
  Country: US (occurrence: None)
  Receive Date: 20250923
  Receipt Date: 20250923
  Transmission Date: 20251021
  Serious: Yes (Hospitalization)
  Sender: FDA-CTU
  Company Number: None

PATIENT
  Age: 69 Year
  Sex: Female
  Weight: 60.75 kg

DRUGS (5)
  1. PROLIA [Suspect]
     Active Substance: DENOSUMAB
     Indication: Osteoporosis
  2. RECLAST [Suspect]
     Active Substance: ZOLEDRONIC ACID
  3. CALCIUM CITRATE [Suspect]
     Active Substance: CALCIUM CITRATE
  4. CALCITRIOL [Suspect]
     Active Substance: CALCITRIOL
  5. CALCIUM CARBONATE [Suspect]
     Active Substance: CALCIUM CARBONATE

REACTIONS (8)
  - Wrong product administered [None]
  - Hypocalcaemia [None]
  - Blood parathyroid hormone increased [None]
  - Vomiting [None]
  - Abdominal distension [None]
  - Diarrhoea [None]
  - Abdominal pain upper [None]
  - Renal disorder [None]

NARRATIVE: CASE EVENT DATE: 20250724
